FAERS Safety Report 8463835-4 (Version None)
Quarter: 2012Q2

REPORT INFORMATION
  Report Type: 
  Country: None (occurrence: None)
  Receive Date: 20120625
  Receipt Date: 20120613
  Transmission Date: 20120825
  Serious: Yes (Hospitalization, Other)
  Sender: FDA-Public Use
  Company Number: US-MYLANLABS-2010AC000041

PATIENT
  Sex: Female

DRUGS (51)
  1. NYSTATIN [Concomitant]
  2. GUAIFENESIN [Concomitant]
  3. DILAUDID [Concomitant]
  4. GUAIFENESIN [Concomitant]
  5. TORADOL [Concomitant]
  6. FLAGYL [Concomitant]
     Dosage: 10 DAYS
     Route: 048
  7. CHANTIX [Concomitant]
  8. LEVAQUIN [Concomitant]
  9. BONIVA [Concomitant]
  10. CARTIA XT [Concomitant]
  11. PENICILLIN VK [Concomitant]
  12. NICODERM [Concomitant]
  13. AVELOX [Concomitant]
  14. DIGOXIN [Suspect]
     Dosage: DOSE UNIT:
     Route: 048
     Dates: start: 20060131, end: 20090401
  15. ALTACE [Concomitant]
     Route: 048
  16. DOXEPIN [Concomitant]
     Route: 048
  17. AMOXICILLIN [Concomitant]
  18. TETRACYCLINE [Concomitant]
  19. CARVEDILOL [Concomitant]
  20. OMEPRAZOLE [Concomitant]
  21. METOCLOPRAMIDE [Concomitant]
  22. OXYCODONE HCL [Concomitant]
  23. MOXIFLOXACIN [Concomitant]
  24. PHENERGAN [Concomitant]
  25. CARAFATE [Concomitant]
  26. DENAVIR [Concomitant]
  27. NEXIUM [Concomitant]
  28. PROMETHAZINE [Concomitant]
  29. ADVAIR DISKUS 100/50 [Concomitant]
  30. AZITHROMYCIN [Concomitant]
  31. COZAAR [Concomitant]
  32. COLACE [Concomitant]
  33. REGLAN [Concomitant]
  34. PROTONIX [Concomitant]
  35. LISINOPRIL [Concomitant]
  36. COREG [Concomitant]
  37. AVELOX [Concomitant]
  38. SPIRONOLACTONE [Concomitant]
     Route: 048
  39. SUCRALFATE [Concomitant]
  40. CAFFEINE W/ERGOTAMINE /00060301/ [Concomitant]
  41. DIAZEPAM [Concomitant]
  42. METRONIDAZOLE [Concomitant]
  43. ASTELIN [Concomitant]
  44. RAMIPRIL [Concomitant]
  45. PREVACID [Concomitant]
  46. PERCOCET [Concomitant]
     Indication: PAIN
     Route: 048
  47. COMBIVENT [Concomitant]
  48. TOPROL-XL [Concomitant]
  49. FLOVENT [Concomitant]
     Dosage: 2 PUFFS BID
  50. VALIUM [Concomitant]
  51. ACETAMINOPHEN [Concomitant]

REACTIONS (58)
  - COUGH [None]
  - PULMONARY HYPERTENSION [None]
  - BREATH SOUNDS ABNORMAL [None]
  - DIARRHOEA [None]
  - CARDIAC MURMUR [None]
  - PULMONARY MASS [None]
  - PAIN [None]
  - ATELECTASIS [None]
  - CARDIOMYOPATHY [None]
  - LUNG SQUAMOUS CELL CARCINOMA STAGE UNSPECIFIED [None]
  - ABDOMINAL PAIN [None]
  - FATIGUE [None]
  - ILL-DEFINED DISORDER [None]
  - DYSPNOEA [None]
  - TOXICITY TO VARIOUS AGENTS [None]
  - CARDIAC FAILURE CONGESTIVE [None]
  - CHEST X-RAY ABNORMAL [None]
  - DEHYDRATION [None]
  - HYPOPROTEINAEMIA [None]
  - VENTRICULAR EXTRASYSTOLES [None]
  - INJURY [None]
  - CHOLELITHIASIS [None]
  - CLOSTRIDIUM DIFFICILE COLITIS [None]
  - CONSTIPATION [None]
  - DYSPNOEA EXERTIONAL [None]
  - ECHOCARDIOGRAM ABNORMAL [None]
  - METASTASIS [None]
  - PAIN IN EXTREMITY [None]
  - TOBACCO USER [None]
  - HYPOPHAGIA [None]
  - MITRAL VALVE INCOMPETENCE [None]
  - PNEUMONIA [None]
  - ANXIETY [None]
  - EMPHYSEMA [None]
  - HAEMATOCHEZIA [None]
  - LUNG NEOPLASM [None]
  - MALNUTRITION [None]
  - PLEURITIC PAIN [None]
  - TACHYPNOEA [None]
  - OXYGEN SATURATION DECREASED [None]
  - EMOTIONAL DISTRESS [None]
  - ECONOMIC PROBLEM [None]
  - ELECTROCARDIOGRAM ABNORMAL [None]
  - RALES [None]
  - ORTHOPNOEA [None]
  - HOSPITALISATION [None]
  - CHRONIC OBSTRUCTIVE PULMONARY DISEASE [None]
  - COMPUTERISED TOMOGRAM ABNORMAL [None]
  - CHILLS [None]
  - HYPOTENSION [None]
  - OEDEMA PERIPHERAL [None]
  - POSITRON EMISSION TOMOGRAM ABNORMAL [None]
  - SPIROMETRY ABNORMAL [None]
  - ASTHENIA [None]
  - AGITATION [None]
  - HYPOKALAEMIA [None]
  - OCCULT BLOOD POSITIVE [None]
  - ORTHOSTATIC HYPOTENSION [None]
